FAERS Safety Report 4276955-5 (Version None)
Quarter: 2004Q1

REPORT INFORMATION
  Report Type: 
  Country: None (occurrence: None)
  Receive Date: 20040120
  Receipt Date: 20040109
  Transmission Date: 20041129
  Serious: Yes (Life-Threatening, Hospitalization, Other)
  Sender: FDA-Public Use
  Company Number: GB-JNJFOC-20040101616

PATIENT
  Age: 18 Year
  Sex: Male
  Weight: 75 kg

DRUGS (5)
  1. REMICADE [Suspect]
     Indication: RHEUMATOID ARTHRITIS
     Dosage: 20 MG, INTRAVENOUS
     Route: 042
     Dates: start: 20030626, end: 20031127
  2. METHOTREXATE [Concomitant]
  3. PREDNISONE [Concomitant]
  4. FOLIC ACID [Concomitant]
  5. FERROUS SULFATE TAB [Concomitant]

REACTIONS (5)
  - CYTOMEGALOVIRUS TEST POSITIVE [None]
  - HYPERSENSITIVITY [None]
  - PYREXIA [None]
  - SEPTIC SHOCK [None]
  - TOOTH EXTRACTION [None]
